FAERS Safety Report 8025535-4 (Version None)
Quarter: 2012Q1

REPORT INFORMATION
  Report Type: 
  Country: None (occurrence: None)
  Receive Date: 20120105
  Receipt Date: 20111228
  Transmission Date: 20120608
  Serious: Yes (Hospitalization)
  Sender: FDA-Public Use
  Company Number: CA-BRISTOL-MYERS SQUIBB COMPANY-16324287

PATIENT
  Age: 59 Year
  Sex: Male

DRUGS (13)
  1. CADUET [Concomitant]
  2. COD LIVER OIL [Concomitant]
  3. METHOTREXATE [Concomitant]
     Dosage: METHOTREXATE INJECTION
  4. TIMOLOL MALEATE [Concomitant]
     Dosage: EYE DROP
  5. GLICLAZIDE [Concomitant]
  6. TRAVATAN [Concomitant]
     Indication: GLAUCOMA
     Dosage: EYE DROPS
  7. ORENCIA [Suspect]
     Indication: RHEUMATOID ARTHRITIS
     Dosage: NO OF INF:1
     Route: 042
     Dates: start: 20111209
  8. VITAMIN C [Concomitant]
  9. ALLOPURINOL [Concomitant]
  10. PANTOPRAZOLE SODIUM [Concomitant]
  11. WARFARIN SODIUM [Concomitant]
  12. FUROSEMIDE [Concomitant]
  13. METOPROLOL SUCCINATE [Concomitant]

REACTIONS (9)
  - DYSPNOEA [None]
  - HEADACHE [None]
  - THROAT IRRITATION [None]
  - FATIGUE [None]
  - VIRAL INFECTION [None]
  - COUGH [None]
  - POOR VENOUS ACCESS [None]
  - ASTHENIA [None]
  - MUSCLE SPASMS [None]
